FAERS Safety Report 24378959 (Version 3)
Quarter: 2025Q1

REPORT INFORMATION
  Report Type: Report from Study
  Country: CA (occurrence: CA)
  Receive Date: 20240930
  Receipt Date: 20250206
  Transmission Date: 20250409
  Serious: Yes (Other)
  Sender: TAKEDA
  Company Number: CA-TAKEDA-2022TUS066047

PATIENT
  Age: 34 Year
  Sex: Female

DRUGS (7)
  1. VEDOLIZUMAB [Suspect]
     Active Substance: VEDOLIZUMAB
     Indication: Colitis ulcerative
  2. VEDOLIZUMAB [Suspect]
     Active Substance: VEDOLIZUMAB
  3. VEDOLIZUMAB [Suspect]
     Active Substance: VEDOLIZUMAB
  4. VEDOLIZUMAB [Suspect]
     Active Substance: VEDOLIZUMAB
     Dosage: 300 MILLIGRAM, Q4WEEKS
     Dates: start: 20241009
  5. VEDOLIZUMAB [Suspect]
     Active Substance: VEDOLIZUMAB
     Dosage: 300 MILLIGRAM, Q4WEEKS
  6. MESALAMINE [Concomitant]
     Active Substance: MESALAMINE
     Dosage: 4.8 GRAM, QD
     Dates: start: 2017
  7. ADDERALL [Concomitant]
     Active Substance: AMPHETAMINE ASPARTATE\AMPHETAMINE SULFATE\DEXTROAMPHETAMINE SACCHARATE\DEXTROAMPHETAMINE SULFATE

REACTIONS (5)
  - Colitis ulcerative [Recovering/Resolving]
  - Diarrhoea [Recovering/Resolving]
  - Flatulence [Recovering/Resolving]
  - Off label use [Unknown]
  - Nausea [Recovered/Resolved]

NARRATIVE: CASE EVENT DATE: 20240228
